FAERS Safety Report 5546781-5 (Version None)
Quarter: 2007Q4

REPORT INFORMATION
  Report Type: 
  Country: None (occurrence: None)
  Receive Date: 20071211
  Receipt Date: 20071129
  Transmission Date: 20080405
  Serious: Yes (Life-Threatening)
  Sender: FDA-Public Use
  Company Number: IT-ROCHE-534295

PATIENT
  Age: 66 Year
  Sex: Male

DRUGS (3)
  1. XELODA [Suspect]
     Indication: GASTROINTESTINAL NEOPLASM
     Route: 048
     Dates: start: 20071024, end: 20071119
  2. FARMORUBICINA [Concomitant]
     Indication: GASTROINTESTINAL NEOPLASM
     Dosage: STRENGTH: 50 MG/25 ML; FORM: VIAL.
     Route: 042
     Dates: start: 20071114, end: 20071114
  3. CISPLATIN [Concomitant]
     Indication: GASTROINTESTINAL NEOPLASM
     Dosage: FORM: VIAL; DRUG NAME: CISPLATINO EBEWE
     Route: 042
     Dates: start: 20071114, end: 20071114

REACTIONS (3)
  - COLON GANGRENE [None]
  - DIARRHOEA [None]
  - MUCOSAL DRYNESS [None]
